FAERS Safety Report 19374866 (Version 1)
Quarter: 2021Q2

REPORT INFORMATION
  Report Type: Spontaneous
  Country: US (occurrence: US)
  Receive Date: 20210604
  Receipt Date: 20210604
  Transmission Date: 20210717
  Serious: Yes (Life-Threatening, Hospitalization)
  Sender: FDA-Public Use
  Company Number: US-MYLANLABS-2021M1032064

PATIENT
  Age: 41 Year
  Sex: Male

DRUGS (3)
  1. DISULFIRAM. [Suspect]
     Active Substance: DISULFIRAM
     Indication: ALCOHOL USE DISORDER
     Dosage: UNK
     Route: 065
  2. FOMEPIZOLE. [Suspect]
     Active Substance: FOMEPIZOLE
     Indication: ANAPHYLACTIC REACTION
     Dosage: 15 MILLIGRAM/KILOGRAM
     Route: 065
  3. NACL [Concomitant]
     Active Substance: SODIUM CHLORIDE
     Indication: HYPOTENSION
     Dosage: 2 LITER
     Route: 042

REACTIONS (3)
  - Shock [Recovering/Resolving]
  - Anaphylactic reaction [Recovering/Resolving]
  - Off label use [Unknown]
